FAERS Safety Report 11068287 (Version 1)
Quarter: 2015Q2

REPORT INFORMATION
  Report Type: Spontaneous
  Country: US (occurrence: US)
  Receive Date: 20150427
  Receipt Date: 20150427
  Transmission Date: 20150821
  Serious: No
  Sender: FDA-Public Use
  Company Number: US-ASTRAZENECA-2010SE18640

PATIENT
  Age: 61 Year
  Sex: Female

DRUGS (6)
  1. PULMICORT RESPULES [Suspect]
     Active Substance: BUDESONIDE
     Indication: ASTHMA
     Route: 055
  2. PULMICORT RESPULES [Suspect]
     Active Substance: BUDESONIDE
     Indication: ASTHMA
     Route: 055
  3. PULMICORT RESPULES [Suspect]
     Active Substance: BUDESONIDE
     Indication: ASTHMA
     Route: 055
  4. CROMOLIND [Concomitant]
  5. PULMICORT RESPULES [Suspect]
     Active Substance: BUDESONIDE
     Indication: ASTHMA
     Route: 055
  6. B VITAMIN [Concomitant]

REACTIONS (5)
  - Allergy to chemicals [Unknown]
  - Intentional product misuse [Unknown]
  - Wheezing [Unknown]
  - Dyspnoea [Unknown]
  - Off label use [Unknown]
